FAERS Safety Report 8189079 (Version 10)
Quarter: 2013Q1

REPORT INFORMATION
  Report Type: Report from Study
  Country: MX (occurrence: MX)
  Receive Date: 20111019
  Receipt Date: 20130213
  Transmission Date: 20140127
  Serious: Yes (Death, Life-Threatening, Hospitalization)
  Sender: FDA-Public Use
  Company Number: MX-BRISTOL-MYERS SQUIBB COMPANY-16170524

PATIENT
  Age: 43 Year
  Sex: Female
  Weight: 33 kg

DRUGS (3)
  1. ERBITUX [Suspect]
     Indication: HEAD AND NECK CANCER
     Dosage: 23SP11=1D(D1OFCYCLE1ONLY),30SP11-5OCT11250MG/M2(297MG)(OND 1,8+15 EVERYCYC),3NV11-ONG,10NV11
     Route: 042
     Dates: start: 20110923
  2. CISPLATIN [Suspect]
     Indication: HEAD AND NECK CANCER
     Dosage: DAY 1 EVERY CYC,LAST DOSE 23-23SEP11?23-26SEP11-1000MG/M2
     Route: 042
     Dates: start: 20110923, end: 20110923
  3. 5-FLUOROURACIL [Suspect]
     Indication: HEAD AND NECK CANCER
     Dosage: ON DAY 1 -4,LAST DOSE ON 26SEP11
     Route: 042
     Dates: start: 20110923, end: 20110926

REACTIONS (5)
  - Respiratory failure [Fatal]
  - Septic shock [Not Recovered/Not Resolved]
  - Pneumonia [Recovered/Resolved]
  - Neutropenia [Recovered/Resolved]
  - Thrombocytopenia [Recovered/Resolved]
